FAERS Safety Report 8240564-3 (Version None)
Quarter: 2012Q1

REPORT INFORMATION
  Report Type: 
  Country: None (occurrence: None)
  Receive Date: 20120328
  Receipt Date: 20120321
  Transmission Date: 20120608
  Serious: Yes (Other)
  Sender: FDA-Public Use
  Company Number: ES-B.I. PHARMACEUTICALS,INC./RIDGEFIELD-2012-ES-00100ES

PATIENT
  Sex: Male
  Weight: 110 kg

DRUGS (4)
  1. PRADAXA [Suspect]
     Indication: ATRIAL FIBRILLATION
     Dosage: 300 MG
     Route: 048
     Dates: start: 20111216, end: 20120117
  2. RAMIPRIL [Concomitant]
     Dosage: 10 MG
     Dates: start: 20100101
  3. PRAVASTATINA [Concomitant]
     Dosage: 20 MG
     Dates: start: 20090101
  4. TORASEMIDA [Concomitant]
     Dosage: 5 MG
     Dates: start: 20100101

REACTIONS (1)
  - RENAL IMPAIRMENT [None]
